FAERS Safety Report 8462158-7 (Version None)
Quarter: 2012Q2

REPORT INFORMATION
  Report Type: 
  Country: None (occurrence: None)
  Receive Date: 20120625
  Receipt Date: 20120615
  Transmission Date: 20120825
  Serious: Yes (Other)
  Sender: FDA-Public Use
  Company Number: US-JNJFOC-20120609589

PATIENT
  Age: 60 Year
  Sex: Female

DRUGS (6)
  1. NAPROXEN (ALEVE) [Suspect]
     Indication: PRODUCT USED FOR UNKNOWN INDICATION
     Route: 065
  2. ANTI DEPRESSANTS [Suspect]
     Indication: PRODUCT USED FOR UNKNOWN INDICATION
     Route: 065
  3. TYLENOL-500 [Suspect]
     Route: 048
  4. PAIN MEDICATION [Suspect]
     Indication: PRODUCT USED FOR UNKNOWN INDICATION
     Route: 065
  5. IBUPROFEN [Suspect]
     Indication: PRODUCT USED FOR UNKNOWN INDICATION
     Route: 065
  6. TYLENOL-500 [Suspect]
     Indication: PAIN
     Dosage: FOR ABOUT 7 TO 8 MONTHS
     Route: 048

REACTIONS (2)
  - COELIAC DISEASE [None]
  - WEIGHT DECREASED [None]
